FAERS Safety Report 7099633-6 (Version None)
Quarter: 2010Q4

REPORT INFORMATION
  Report Type: 
  Country: None (occurrence: None)
  Receive Date: 20101112
  Receipt Date: 20101104
  Transmission Date: 20110411
  Serious: Yes (Hospitalization)
  Sender: FDA-Public Use
  Company Number: IT-B.I. PHARMACEUTICALS,INC./RIDGEFIELD-2010-DE-06231BY

PATIENT
  Sex: Female

DRUGS (5)
  1. PRITOR [Suspect]
     Indication: HYPERTENSION
     Dosage: 40 MG
     Route: 048
     Dates: start: 20100702, end: 20100802
  2. COUMADIN [Suspect]
     Indication: ATRIAL FIBRILLATION
     Dosage: 5 MG
     Route: 048
     Dates: start: 20100701, end: 20100802
  3. EUTIROX [Concomitant]
     Route: 048
     Dates: start: 20100101, end: 20100802
  4. DILATREND [Concomitant]
     Route: 048
     Dates: start: 20100707, end: 20100802
  5. PROPAFENONE HCL [Concomitant]
     Route: 048

REACTIONS (2)
  - FLANK PAIN [None]
  - HAEMATURIA [None]
